FAERS Safety Report 8560934-3 (Version None)
Quarter: 2012Q3

REPORT INFORMATION
  Report Type: 
  Country: None (occurrence: None)
  Receive Date: 20120802
  Receipt Date: 20120724
  Transmission Date: 20120928
  Serious: Yes (Hospitalization)
  Sender: FDA-Public Use
  Company Number: IL-ELI_LILLY_AND_COMPANY-IL201208000285

PATIENT
  Sex: Female
  Weight: 50 kg

DRUGS (5)
  1. FOLIC ACID [Concomitant]
  2. FORTEO [Suspect]
     Indication: OSTEOPOROSIS
     Dosage: 20 UG, QD
     Route: 058
     Dates: start: 20110119
  3. PREDNISONE [Concomitant]
  4. NORMITEN [Concomitant]
  5. ASPIRIN [Concomitant]

REACTIONS (1)
  - LUNG NEOPLASM [None]
